FAERS Safety Report 25934880 (Version 1)
Quarter: 2025Q4

REPORT INFORMATION
  Report Type: Spontaneous
  Country: EU (occurrence: EU)
  Receive Date: 20251017
  Receipt Date: 20251017
  Transmission Date: 20260118
  Serious: Yes (Other)
  Sender: PFIZER
  Company Number: None

PATIENT
  Age: 96 Year
  Sex: Female
  Weight: 41 kg

DRUGS (7)
  1. PAXLOVID [Suspect]
     Active Substance: NIRMATRELVIR\RITONAVIR
     Indication: COVID-19 treatment
     Dosage: 1 DF, 1X/DAY
     Route: 048
     Dates: start: 20250930, end: 20251002
  2. OXAZEPAM [Concomitant]
     Active Substance: OXAZEPAM
     Dosage: 1 DF, 1X/DAY
     Route: 048
  3. DAFALGAN [Concomitant]
     Active Substance: ACETAMINOPHEN
     Dosage: UNK UNK, AS NEEDED
     Route: 048
  4. GAVISCON [ALGINIC ACID;ALUMINIUM HYDROXIDE;MAGNESIUM TRISILICATE;SODIU [Concomitant]
     Dosage: UNK UNK, AS NEEDED
     Route: 048
  5. FOLIC ACID [Concomitant]
     Active Substance: FOLIC ACID
     Dosage: 1 DF, 1X/DAY
     Route: 048
  6. LACTULOSE [Concomitant]
     Active Substance: LACTULOSE
     Dosage: UNK UNK, AS NEEDED
     Route: 048
  7. LOVENOX [Concomitant]
     Active Substance: ENOXAPARIN SODIUM
     Dosage: 1 DF, 1X/DAY
     Route: 048

REACTIONS (3)
  - Hyperkalaemia [Unknown]
  - Hepatic cytolysis [Unknown]
  - Cholestasis [Unknown]

NARRATIVE: CASE EVENT DATE: 20251002
